FAERS Safety Report 24603220 (Version 1)
Quarter: 2024Q4

REPORT INFORMATION
  Report Type: Spontaneous
  Country: GB (occurrence: GB)
  Receive Date: 20241111
  Receipt Date: 20241111
  Transmission Date: 20250115
  Serious: Yes (Death)
  Sender: MYLAN
  Company Number: GB-MYLANLABS-2024M1101041

PATIENT
  Age: 84 Year
  Sex: Male

DRUGS (3)
  1. LEVETIRACETAM [Suspect]
     Active Substance: LEVETIRACETAM
     Indication: Seizure
     Dosage: UNK
     Route: 065
  2. RIVASTIGMINE [Suspect]
     Active Substance: RIVASTIGMINE
     Indication: Dementia with Lewy bodies
     Dosage: UNK
     Route: 065
  3. PROCHLORPERAZINE [Concomitant]
     Active Substance: PROCHLORPERAZINE
     Indication: Vertigo
     Dosage: UNK
     Route: 065

REACTIONS (1)
  - Drug ineffective [Fatal]
